FAERS Safety Report 5140398-2 (Version None)
Quarter: 2006Q4

REPORT INFORMATION
  Report Type: 
  Country: None (occurrence: None)
  Receive Date: 20061024
  Receipt Date: 20061006
  Transmission Date: 20070319
  Serious: Yes (Death, Life-Threatening)
  Sender: FDA-Public Use
  Company Number: DE200610001502

PATIENT
  Sex: Female

DRUGS (3)
  1. FORTEO [Suspect]
  2. FORTEO PEN (250 MCG/ML) (FORTEO PEN) [Concomitant]
  3. ANALGESICS [Concomitant]

REACTIONS (2)
  - ACUTE MYOCARDIAL INFARCTION [None]
  - SUDDEN DEATH [None]
